FAERS Safety Report 7093449-2 (Version None)
Quarter: 2010Q4

REPORT INFORMATION
  Report Type: 
  Country: None (occurrence: None)
  Receive Date: 20101110
  Receipt Date: 20101101
  Transmission Date: 20110411
  Serious: Yes (Other)
  Sender: FDA-Public Use
  Company Number: DK-AMGEN-QUU440000

PATIENT

DRUGS (3)
  1. NPLATE [Suspect]
     Indication: IDIOPATHIC THROMBOCYTOPENIC PURPURA
     Dosage: 325 MG, QWK
     Route: 058
     Dates: start: 20100720
  2. TRANEXAMIC ACID [Concomitant]
     Dosage: 1 G, UNK
     Route: 048
     Dates: start: 20100921
  3. IMMU-G [Concomitant]
     Dosage: 30 G, QD
     Dates: start: 20100707, end: 20100710

REACTIONS (4)
  - CHRONIC LYMPHOCYTIC LEUKAEMIA [None]
  - PLATELET COUNT DECREASED [None]
  - PYREXIA [None]
  - THERAPEUTIC RESPONSE DECREASED [None]
